FAERS Safety Report 11689899 (Version 3)
Quarter: 2015Q4

REPORT INFORMATION
  Report Type: Spontaneous
  Country: JP (occurrence: JP)
  Receive Date: 20151102
  Receipt Date: 20151207
  Transmission Date: 20160304
  Serious: Yes (Death, Hospitalization, Disabling)
  Sender: FDA-Public Use
  Company Number: JP-ELI_LILLY_AND_COMPANY-JP201510009363

PATIENT
  Age: 73 Year
  Sex: Male
  Weight: 57.6 kg

DRUGS (6)
  1. DUROTEP [Concomitant]
     Active Substance: FENTANYL
     Indication: CANCER PAIN
     Dosage: 8.4 MG, TID
     Route: 062
     Dates: start: 201510, end: 20151031
  2. NEXIUM [Concomitant]
     Active Substance: ESOMEPRAZOLE MAGNESIUM
     Indication: PROPHYLAXIS
     Dosage: UNK
     Route: 048
     Dates: start: 20150626
  3. MECOBALAMIN [Concomitant]
     Active Substance: METHYLCOBALAMIN
     Indication: NEUROPATHY PERIPHERAL
     Dosage: UNK
     Route: 048
  4. CYRAMZA [Suspect]
     Active Substance: RAMUCIRUMAB
     Indication: GASTRIC CANCER
     Dosage: 8 MG/KG, OTHER
     Route: 042
     Dates: start: 20151013, end: 20151013
  5. PACLITAXEL. [Suspect]
     Active Substance: PACLITAXEL
     Indication: GASTRIC CANCER
     Dosage: 80 MG/M2, OTHER
     Route: 042
     Dates: start: 20151013, end: 20151021
  6. ELIQUIS [Concomitant]
     Active Substance: APIXABAN
     Indication: PELVIC VENOUS THROMBOSIS
     Dosage: UNK MG, UNK
     Route: 048
     Dates: start: 20150704, end: 20151117

REACTIONS (2)
  - Interstitial lung disease [Fatal]
  - Pneumothorax [Not Recovered/Not Resolved]

NARRATIVE: CASE EVENT DATE: 20151027
